FAERS Safety Report 13112779 (Version 1)
Quarter: 2017Q1

REPORT INFORMATION
  Report Type: Spontaneous
  Country: US (occurrence: US)
  Receive Date: 20170112
  Receipt Date: 20170112
  Transmission Date: 20170428
  Serious: Yes (Disabling)
  Sender: FDA-Public Use
  Company Number: None

PATIENT
  Age: 69 Year
  Sex: Male
  Weight: 62.1 kg

DRUGS (9)
  1. CALCIUM [Concomitant]
     Active Substance: CALCIUM
  2. CLARITIN [Suspect]
     Active Substance: LORATADINE
     Indication: MULTIPLE ALLERGIES
     Dosage: QUANTITY:1 TABLET(S);OTHER FREQUENCY:1 A DAY(24 HOURS);?
     Route: 048
     Dates: end: 20160409
  3. ONE A DAY 65+ MULTI SUPPLEMENT [Concomitant]
  4. KIRKLAND KRILL OIL [Concomitant]
  5. PHILLIPS-FIBER GUMMINES [Concomitant]
  6. LANTANOPROST [Concomitant]
     Active Substance: LATANOPROST
  7. KIRKLAND VITAMIN D3 [Concomitant]
  8. VIACTIV CALCIUM PLUS D9 [Concomitant]
  9. LISINOPRIL-HCTZ [Concomitant]
     Active Substance: HYDROCHLOROTHIAZIDE\LISINOPRIL

REACTIONS (11)
  - Nightmare [None]
  - Muscle disorder [None]
  - Loss of consciousness [None]
  - Arthropathy [None]
  - Movement disorder [None]
  - Muscle strain [None]
  - Abasia [None]
  - Joint range of motion decreased [None]
  - Muscular weakness [None]
  - Fall [None]
  - Nerve injury [None]

NARRATIVE: CASE EVENT DATE: 20150409
